FAERS Safety Report 10108961 (Version 1)
Quarter: 2014Q2

REPORT INFORMATION
  Report Type: Spontaneous
  Country: US (occurrence: US)
  Receive Date: 20140425
  Receipt Date: 20140425
  Transmission Date: 20141212
  Serious: No
  Sender: FDA-Public Use
  Company Number: US-JNJFOC-20140319146

PATIENT
  Age: 19 Year
  Sex: Male
  Weight: 65.77 kg

DRUGS (1)
  1. INVEGA [Suspect]
     Indication: PRODUCT USED FOR UNKNOWN INDICATION
     Route: 048
     Dates: start: 201403

REACTIONS (2)
  - Abnormal behaviour [Not Recovered/Not Resolved]
  - Medication residue present [Not Recovered/Not Resolved]
